FAERS Safety Report 5070135-1 (Version None)
Quarter: 2006Q3

REPORT INFORMATION
  Report Type: 
  Country: None (occurrence: None)
  Receive Date: 20060714
  Receipt Date: 20060406
  Transmission Date: 20061208
  Serious: No
  Sender: FDA-Public Use
  Company Number: 2006SP001599

PATIENT
  Age: 76 Year
  Sex: Female
  Weight: 72.5755 kg

DRUGS (6)
  1. LUNESTA [Suspect]
     Indication: INSOMNIA
     Dosage: 1 MG;1X;ORAL
     Route: 048
     Dates: start: 20060406, end: 20060406
  2. ULTRACET [Concomitant]
  3. PLAVIX [Concomitant]
  4. DIGITEK [Concomitant]
  5. INSULIN [Concomitant]
  6. LORAZEPAM [Concomitant]

REACTIONS (3)
  - DYSPNOEA [None]
  - INITIAL INSOMNIA [None]
  - MALAISE [None]
